FAERS Safety Report 4489577-8 (Version None)
Quarter: 2004Q4

REPORT INFORMATION
  Report Type: 
  Country: None (occurrence: None)
  Receive Date: 20041028
  Receipt Date: 20041022
  Transmission Date: 20050328
  Serious: Yes (Hospitalization)
  Sender: FDA-Public Use
  Company Number: S04-USA-06960-01

PATIENT
  Age: 31 Year
  Sex: Female

DRUGS (4)
  1. LEXAPRO [Suspect]
     Indication: DEPRESSION
     Dosage: 20 MG QD PO
     Route: 048
     Dates: start: 20041018
  2. LEXAPRO [Suspect]
     Indication: DEPRESSION
     Dosage: 10 MG QD PO
     Route: 048
     Dates: start: 20040101, end: 20041017
  3. GABITRIL [Suspect]
     Dosage: 2 MG QD
     Dates: start: 20040101, end: 20040801
  4. GABITRIL [Suspect]
     Dosage: 4 MG QD
     Dates: start: 20040801, end: 20041001

REACTIONS (3)
  - CATATONIA [None]
  - DRUG INTERACTION [None]
  - LOSS OF CONSCIOUSNESS [None]
